FAERS Safety Report 18666035 (Version 1)
Quarter: 2020Q4

REPORT INFORMATION
  Report Type: Spontaneous
  Country: DE (occurrence: DE)
  Receive Date: 20201226
  Receipt Date: 20201226
  Transmission Date: 20210114
  Serious: Yes (Other)
  Sender: FDA-Public Use
  Company Number: DE-TEVA-2020-DE-1860923

PATIENT
  Age: 20 Year
  Sex: Female
  Weight: 95 kg

DRUGS (3)
  1. QUETIAPIN [Concomitant]
     Active Substance: QUETIAPINE
     Indication: DEPRESSION
     Dosage: 50MG
     Route: 048
     Dates: start: 20200901, end: 20200926
  2. BUPROPION. [Suspect]
     Active Substance: BUPROPION
     Indication: DEPRESSION
     Dosage: 150 MILLIGRAM DAILY; 1-0-0
     Route: 048
     Dates: start: 20200812
  3. BUPROPION. [Suspect]
     Active Substance: BUPROPION
     Dosage: 300MG
     Route: 048
     Dates: start: 20200901, end: 20200926

REACTIONS (1)
  - Generalised tonic-clonic seizure [Recovered/Resolved]

NARRATIVE: CASE EVENT DATE: 20200926
